FAERS Safety Report 24862056 (Version 1)
Quarter: 2025Q1

REPORT INFORMATION
  Report Type: Report from Study
  Country: US (occurrence: US)
  Receive Date: 20250120
  Receipt Date: 20250120
  Transmission Date: 20250409
  Serious: Yes (Other)
  Sender: Pyros Pharmaceuticals
  Company Number: US-PYROS PHARMACEUTICALS, INC-2025-PYROS-US000006

PATIENT
  Age: 2 Year
  Sex: Male
  Weight: 14 kg

DRUGS (4)
  1. VIGAFYDE [Suspect]
     Active Substance: VIGABATRIN
     Indication: Infantile spasms
     Route: 065
     Dates: end: 20250105
  2. VIGAFYDE [Suspect]
     Active Substance: VIGABATRIN
     Dosage: 400 MG (4 ML), DAILY EVERY MORNING
     Route: 065
     Dates: start: 20250106
  3. VIGAFYDE [Suspect]
     Active Substance: VIGABATRIN
     Dosage: 1000 MG (10 ML), DAILY EVERY EVENING
     Route: 048
     Dates: start: 20250106
  4. BRIVIACT [Concomitant]
     Active Substance: BRIVARACETAM
     Indication: Product used for unknown indication
     Route: 065

REACTIONS (2)
  - Seizure [Unknown]
  - Drug ineffective [Unknown]

NARRATIVE: CASE EVENT DATE: 20250101
